FAERS Safety Report 17116152 (Version 1)
Quarter: 2019Q4

REPORT INFORMATION
  Report Type: Spontaneous
  Country: US (occurrence: US)
  Receive Date: 20191112
  Receipt Date: 20191112
  Transmission Date: 20200122
  Serious: Yes (Other)
  Sender: FDA-Public Use
  Company Number: None

PATIENT
  Age: 76 Year
  Sex: Male
  Weight: 86.18 kg

DRUGS (5)
  1. EYLEA [Concomitant]
     Active Substance: AFLIBERCEPT
  2. ASPIRIN. [Concomitant]
     Active Substance: ASPIRIN
  3. PRESERVISION [Concomitant]
     Active Substance: MINERALS\VITAMINS
  4. AVASTIN [Suspect]
     Active Substance: BEVACIZUMAB
     Indication: NEOVASCULAR AGE-RELATED MACULAR DEGENERATION
     Dosage: ?          QUANTITY:1 DF DOSAGE FORM;OTHER FREQUENCY:EVERY 6-7 WEEKS;?
     Route: 031
     Dates: start: 201509, end: 20190717
  5. CENTRUM SILVER [Concomitant]
     Active Substance: MINERALS\VITAMINS

REACTIONS (4)
  - Syringe issue [None]
  - Suspected product contamination [None]
  - Endophthalmitis [None]
  - Suspected transmission of an infectious agent via product [None]

NARRATIVE: CASE EVENT DATE: 20190720
